FAERS Safety Report 21029140 (Version 2)
Quarter: 2022Q3

REPORT INFORMATION
  Report Type: Spontaneous
  Country: US (occurrence: US)
  Receive Date: 20220630
  Receipt Date: 20220715
  Transmission Date: 20221027
  Serious: Yes (Life-Threatening, Hospitalization)
  Sender: FDA-Public Use
  Company Number: US-TEVA-2022-US-2049835

PATIENT
  Age: 31 Year
  Sex: Male

DRUGS (10)
  1. CISPLATIN [Suspect]
     Active Substance: CISPLATIN
     Indication: Adrenocortical carcinoma
     Route: 065
  2. DEXAMETHASONE [Suspect]
     Active Substance: DEXAMETHASONE
     Indication: Cortisol increased
     Route: 065
  3. DOXORUBICIN [Suspect]
     Active Substance: DOXORUBICIN
     Indication: Adrenocortical carcinoma
     Route: 065
  4. ETOPOSIDE [Suspect]
     Active Substance: ETOPOSIDE
     Indication: Adrenocortical carcinoma
     Route: 065
  5. TYLENOL [Suspect]
     Active Substance: ACETAMINOPHEN
     Indication: Flank pain
     Route: 065
  6. METYRAPONE [Suspect]
     Active Substance: METYRAPONE
     Indication: Adrenocortical carcinoma
     Route: 065
  7. METYRAPONE [Suspect]
     Active Substance: METYRAPONE
     Dosage: 2250 MILLIGRAM DAILY;
     Route: 065
  8. MITOTANE [Suspect]
     Active Substance: MITOTANE
     Indication: Adrenocortical carcinoma
     Route: 065
  9. MITOTANE [Suspect]
     Active Substance: MITOTANE
     Dosage: 3000 MILLIGRAM DAILY;
  10. ALDACTONE [Concomitant]
     Active Substance: SPIRONOLACTONE
     Indication: Hypertension
     Route: 065

REACTIONS (6)
  - Neutropenia [Unknown]
  - Anaemia [Unknown]
  - Pyrexia [Unknown]
  - Pneumonia [Unknown]
  - Respiratory failure [Unknown]
  - Drug ineffective [Unknown]
